FAERS Safety Report 4927910-0 (Version None)
Quarter: 2006Q1

REPORT INFORMATION
  Report Type: 
  Country: None (occurrence: None)
  Receive Date: 20060228
  Receipt Date: 20060222
  Transmission Date: 20060701
  Serious: Yes (Life-Threatening, Other)
  Sender: FDA-Public Use
  Company Number: CA-JNJFOC-20051002940

PATIENT
  Sex: Male

DRUGS (5)
  1. REMICADE [Suspect]
     Indication: CROHN'S DISEASE
     Route: 042
  2. PREDNISONE [Concomitant]
     Indication: CROHN'S DISEASE
     Dosage: VARYING DOSES
     Route: 048
  3. FLAGYL [Concomitant]
     Indication: CROHN'S DISEASE
     Route: 048
  4. IMURAN [Concomitant]
     Indication: CROHN'S DISEASE
     Dosage: 100-180 MG DAILY
     Route: 048
  5. PENTASA [Concomitant]
     Indication: CROHN'S DISEASE
     Route: 048

REACTIONS (1)
  - HEPATIC NEOPLASM MALIGNANT [None]
